FAERS Safety Report 13698628 (Version 1)
Quarter: 2017Q2

REPORT INFORMATION
  Report Type: Spontaneous
  Country: IT (occurrence: IT)
  Receive Date: 20170628
  Receipt Date: 20170628
  Transmission Date: 20170830
  Serious: Yes (Other)
  Sender: FDA-Public Use
  Company Number: IT-PFIZER INC-2017280163

PATIENT
  Sex: Male

DRUGS (2)
  1. MEDROL [Suspect]
     Active Substance: METHYLPREDNISOLONE
     Indication: POLYMYALGIA RHEUMATICA
     Dosage: SINCE 3 YEARS
  2. MEDROL [Suspect]
     Active Substance: METHYLPREDNISOLONE
     Dosage: SINCE 3 YEARS

REACTIONS (1)
  - Haemorrhage [Not Recovered/Not Resolved]
